FAERS Safety Report 4286600-0 (Version None)
Quarter: 2004Q1

REPORT INFORMATION
  Report Type: 
  Country: None (occurrence: None)
  Receive Date: 20040204
  Receipt Date: 20040123
  Transmission Date: 20041129
  Serious: Yes (Hospitalization, Disabling)
  Sender: FDA-Public Use
  Company Number: 200308657

PATIENT
  Age: 68 Year
  Sex: Female

DRUGS (11)
  1. STREPTOKINASE (STREPTOKINASE) (UNKNOWN) [Suspect]
     Indication: MYOCARDIAL INFARCTION
     Dosage: 1.5 MIU DAILY IV
     Route: 042
     Dates: start: 20030414, end: 20030414
  2. ASPIRIN [Suspect]
     Indication: MYOCARDIAL INFARCTION
     Dosage: 150 MG DAILY PO
     Route: 048
     Dates: start: 20030414, end: 20030414
  3. ENOXAPARIN OR PLACEBO VS. HEPARIN OR PLACEBO [Suspect]
     Indication: MYOCARDIAL INFARCTION
     Dosage: IV
     Route: 042
     Dates: start: 20030414, end: 20030415
  4. AVAPRO [Concomitant]
  5. PLENDIL [Concomitant]
  6. QUININE SULFATE [Concomitant]
  7. RANITIDINE [Concomitant]
  8. SEREPAX [Concomitant]
  9. PROCHLORPERAZINE [Concomitant]
  10. VIOXX [Concomitant]
  11. ZYLOPRIM [Concomitant]

REACTIONS (3)
  - HAEMATOMA [None]
  - INFUSION SITE REACTION [None]
  - PARAESTHESIA [None]
